FAERS Safety Report 25149585 (Version 2)
Quarter: 2025Q2

REPORT INFORMATION
  Report Type: Spontaneous
  Country: GB (occurrence: GB)
  Receive Date: 20250402
  Receipt Date: 20250410
  Transmission Date: 20250716
  Serious: Yes (Other)
  Sender: MYLAN
  Company Number: GB-MYLANLABS-2025M1027157

PATIENT
  Sex: Male

DRUGS (2)
  1. CLOZARIL [Suspect]
     Active Substance: CLOZAPINE
     Indication: Schizophrenia
     Dates: start: 20250307, end: 20250323
  2. CLOZARIL [Suspect]
     Active Substance: CLOZAPINE

REACTIONS (5)
  - Myocarditis [Recovering/Resolving]
  - C-reactive protein increased [Unknown]
  - Eosinophilia [Unknown]
  - Pyrexia [Unknown]
  - Tachycardia [Unknown]

NARRATIVE: CASE EVENT DATE: 20250301
